FAERS Safety Report 7361500-8 (Version None)
Quarter: 2011Q1

REPORT INFORMATION
  Report Type: 
  Country: None (occurrence: None)
  Receive Date: 20110309
  Receipt Date: 20110225
  Transmission Date: 20110831
  Serious: Yes (Hospitalization, Other)
  Sender: FDA-Public Use
  Company Number: 021938

PATIENT
  Age: 36 Year
  Sex: Female

DRUGS (4)
  1. TOPIRAMATE [Suspect]
     Indication: EPILEPSY
     Dosage: ORAL
     Route: 048
  2. LACOSAMIDE [Suspect]
     Indication: EPILEPSY
     Dosage: 100 MG, (200 MG)
  3. OXCARBAZEPINE [Suspect]
     Indication: EPILEPSY
     Dosage: 1350 MG, 1200 MG, DECREASED BY 150 MG, 300 MG REDUCED GRADUALLY OVER 3 WEEKS)
  4. PHENYTOIN [Suspect]
     Indication: EPILEPSY

REACTIONS (4)
  - DIPLOPIA [None]
  - ANTICONVULSANT DRUG LEVEL DECREASED [None]
  - CONVULSION [None]
  - BALANCE DISORDER [None]
